FAERS Safety Report 23300855 (Version 3)
Quarter: 2024Q1

REPORT INFORMATION
  Report Type: Spontaneous
  Country: JP (occurrence: None)
  Receive Date: 20231215
  Receipt Date: 20240228
  Transmission Date: 20240410
  Serious: Yes (Hospitalization, Other)
  Sender: FDA-Public Use
  Company Number: 2023A279876

PATIENT
  Age: 60 Year
  Sex: Male
  Weight: 76 kg

DRUGS (2)
  1. IMFINZI [Suspect]
     Active Substance: DURVALUMAB
     Indication: Hepatocellular carcinoma
     Route: 041
     Dates: start: 20231013, end: 20231110
  2. IMJUDO [Suspect]
     Active Substance: TREMELIMUMAB\TREMELIMUMAB-ACTL
     Indication: Hepatocellular carcinoma
     Route: 041
     Dates: start: 20231013, end: 20231013

REACTIONS (2)
  - Thrombosis [Unknown]
  - Immune-mediated myositis [Recovering/Resolving]

NARRATIVE: CASE EVENT DATE: 20231101
